FAERS Safety Report 8590725 (Version 4)
Quarter: 2012Q4

REPORT INFORMATION
  Report Type: 
  Country: JP (occurrence: JP)
  Receive Date: 20120522
  Receipt Date: 20121125
  Transmission Date: 20130627
  Serious: Yes (Hospitalization)
  Sender: FDA-Public Use
  Company Number: JP-MSD-2012SP024996

PATIENT
  Age: 63 Year
  Sex: Female
  Weight: 68 kg

DRUGS (20)
  1. PEGINTRON [Suspect]
     Indication: CHRONIC HEPATITIS C
     Dosage: 1.5 Microgram per kilogram, qw
     Route: 058
     Dates: start: 20120313, end: 20120424
  2. PEGINTRON [Suspect]
     Dosage: 1.5 Microgram per kilogram, qw
     Route: 058
     Dates: start: 20120508, end: 20120904
  3. REBETOL [Suspect]
     Indication: CHRONIC HEPATITIS C
     Dosage: 800 mg, qd
     Route: 048
     Dates: start: 20120313, end: 20120402
  4. REBETOL [Suspect]
     Dosage: 400 mg, qd, cumulative dose: 10400 mg
     Route: 048
     Dates: start: 20120403, end: 20120424
  5. TELAVIC [Suspect]
     Indication: CHRONIC HEPATITIS C
     Dosage: 1500 mg, qd
     Route: 048
     Dates: start: 20120313, end: 20120424
  6. AMLODIN (AMLODIPINE BESYLATE) [Concomitant]
     Indication: HYPERTENSION
     Dosage: 5 mg, qd, FORMULATION:POR
     Route: 048
  7. RENIVACE [Concomitant]
     Indication: HYPERTENSION
     Dosage: 5 mg, qd, FORMULATION:POR
     Route: 048
     Dates: end: 20120428
  8. THYRADIN [Concomitant]
     Indication: HYPOTHYROIDISM
     Dosage: 50 mg, qd
     Route: 048
  9. LASIX (FUROSEMIDE) [Concomitant]
     Indication: HYPERTENSION
     Dosage: 20 mg, qd
     Route: 048
     Dates: start: 20120427, end: 20120427
  10. FLOMOX [Concomitant]
     Indication: PROPHYLAXIS
     Dosage: 300 mg, Once
     Route: 048
     Dates: start: 20120522, end: 20120527
  11. LAC BR [Concomitant]
     Indication: PROPHYLAXIS
     Dosage: 3 mg, qd,
     Route: 048
     Dates: start: 20120522, end: 20120529
  12. TAKEPRON [Concomitant]
     Indication: PROPHYLAXIS
     Dosage: 15 mg, qd
     Route: 048
     Dates: start: 20120316
  13. AMLODIPINE BESYLATE [Concomitant]
     Indication: HYPERTENSION
     Dosage: 5 mg, qd
     Route: 048
     Dates: start: 20120429, end: 20120522
  14. RENIVEZE [Concomitant]
     Indication: HYPERTENSION
     Dosage: 5 mg, qd
     Route: 048
     Dates: start: 20120429, end: 20120522
  15. LACB R [Concomitant]
     Indication: PROPHYLAXIS
     Dosage: 3 g, qd
     Route: 048
     Dates: start: 20120522, end: 20120529
  16. REBAMIPIDE OD [Concomitant]
     Indication: PROPHYLAXIS
     Dosage: 300 mg, qd
     Route: 048
     Dates: start: 20120410
  17. LOXOPROFEN [Concomitant]
     Indication: PROPHYLAXIS
     Dosage: 180 mg, qd
     Route: 048
     Dates: start: 20120314
  18. LOXOPROFEN [Concomitant]
     Indication: ADVERSE EVENT
  19. LAC-B [Concomitant]
     Indication: PROPHYLAXIS
     Dosage: 3 g, qd,FORMULATION:POR
     Route: 048
     Dates: start: 20120619
  20. KARY UNI [Concomitant]
     Indication: CATARACT
     Dosage: proper dose, tid
     Route: 047

REACTIONS (5)
  - Pyelonephritis [Recovered/Resolved]
  - Aphthous stomatitis [None]
  - Drug eruption [None]
  - Haemoglobin decreased [None]
  - Hypokalaemia [None]
